FAERS Safety Report 9296221 (Version 1)
Quarter: 2013Q2

REPORT INFORMATION
  Report Type: Spontaneous
  Country: JP (occurrence: JP)
  Receive Date: 20130517
  Receipt Date: 20130517
  Transmission Date: 20140414
  Serious: Yes (Other)
  Sender: FDA-Public Use
  Company Number: JP-GLAXOSMITHKLINE-B0891572A

PATIENT
  Sex: 0

DRUGS (1)
  1. FLUTIDE ROTADISK 100 [Suspect]
     Indication: ASTHMA
     Dosage: 100MCG PER DAY
     Route: 055

REACTIONS (1)
  - Multiple sclerosis [Unknown]
